FAERS Safety Report 9643939 (Version 1)
Quarter: 2013Q4

REPORT INFORMATION
  Report Type: Spontaneous
  Country: FR (occurrence: FR)
  Receive Date: 20131024
  Receipt Date: 20131024
  Transmission Date: 20140711
  Serious: Yes (Hospitalization, Other)
  Sender: FDA-Public Use
  Company Number: US-ASTRAZENECA-2013SE77798

PATIENT
  Age: 67 Year
  Sex: Male

DRUGS (10)
  1. KENZEN [Suspect]
     Indication: PRODUCT USED FOR UNKNOWN INDICATION
     Route: 048
     Dates: end: 20130821
  2. BI-PROFENID [Suspect]
     Indication: PRODUCT USED FOR UNKNOWN INDICATION
     Dates: start: 20130817, end: 20130821
  3. XARELTO [Concomitant]
     Dates: end: 20130821
  4. PLAVIX [Concomitant]
     Dates: end: 20130823
  5. BISOPROLOL FUMARATE [Concomitant]
  6. METFORMINE [Concomitant]
  7. TAHOR [Concomitant]
  8. NOVOMIX [Concomitant]
     Dosage: 26ML IN THE MORNING AND 32 ML IN THE EVENING
     Route: 058
  9. DOLIPRANE [Concomitant]
  10. PANTOPRAZOLE SODIUM SESQUIHYDRATE [Concomitant]

REACTIONS (3)
  - Cardiac failure [Recovered/Resolved]
  - Renal failure acute [Recovered/Resolved]
  - Hyperkalaemia [Recovered/Resolved]
